FAERS Safety Report 9806198 (Version 1)
Quarter: 2014Q1

REPORT INFORMATION
  Report Type: Spontaneous
  Country: US (occurrence: US)
  Receive Date: 20140109
  Receipt Date: 20140109
  Transmission Date: 20141002
  Serious: Yes (Hospitalization, Other)
  Sender: FDA-Public Use
  Company Number: US-PFIZER INC-2014003384

PATIENT
  Age: 35 Year
  Sex: Male
  Weight: 69.66 kg

DRUGS (7)
  1. GABAPENTIN [Suspect]
     Dosage: 1200 MG, 3X/DAY
  2. GABAPENTIN [Suspect]
     Dosage: 300 MG, 3X/DAY
  3. MIRTAZAPINE [Concomitant]
     Dosage: UNK
  4. AMITRIPTYLINE [Concomitant]
     Dosage: UNK
  5. LOVENOX [Concomitant]
     Dosage: UNK
  6. LAMOTRIGINE [Concomitant]
     Dosage: UNK
  7. NORTRIPTYLINE [Concomitant]
     Indication: DEPRESSION
     Dosage: 25 MG, UNK

REACTIONS (11)
  - Overdose [Unknown]
  - Negative thoughts [Unknown]
  - Suicide attempt [Unknown]
  - Depression [Unknown]
  - Anxiety [Unknown]
  - Deep vein thrombosis [Unknown]
  - Pain [Unknown]
  - Myofascial pain syndrome [Unknown]
  - Stress [Unknown]
  - Myalgia [Unknown]
  - Muscle spasms [Unknown]
